FAERS Safety Report 5599538-3 (Version None)
Quarter: 2008Q1

REPORT INFORMATION
  Report Type: 
  Country: None (occurrence: None)
  Receive Date: 20080123
  Receipt Date: 20080116
  Transmission Date: 20080703
  Serious: Yes (Other)
  Sender: FDA-Public Use
  Company Number: CA-ASTRAZENECA-2007UW00570

PATIENT
  Age: 57 Year
  Sex: Female

DRUGS (7)
  1. ARIMIDEX [Suspect]
     Indication: BREAST CANCER
     Route: 048
     Dates: start: 20020101
  2. VITAMIN CAP [Concomitant]
  3. CALCIUM GLUCONATE [Concomitant]
  4. VITAMIN D [Concomitant]
  5. COZAAR [Concomitant]
     Indication: HYPERTENSION
     Route: 048
  6. LOSEC I.V. [Concomitant]
     Indication: REFLUX OESOPHAGITIS
     Route: 048
  7. TENORMIN [Concomitant]

REACTIONS (12)
  - ALOPECIA [None]
  - ARTHRALGIA [None]
  - ARTHROPATHY [None]
  - CARPAL TUNNEL SYNDROME [None]
  - DIARRHOEA [None]
  - HEART RATE INCREASED [None]
  - HOT FLUSH [None]
  - HYPOAESTHESIA [None]
  - JOINT SWELLING [None]
  - MOOD SWINGS [None]
  - NAUSEA [None]
  - PARAESTHESIA [None]
